FAERS Safety Report 4479960-9 (Version None)
Quarter: 2004Q4

REPORT INFORMATION
  Report Type: 
  Country: None (occurrence: None)
  Receive Date: 20041020
  Receipt Date: 20041012
  Transmission Date: 20050328
  Serious: Yes (Other)
  Sender: FDA-Public Use
  Company Number: US-JNJFOC-20040910082

PATIENT
  Sex: Female
  Weight: 68.04 kg

DRUGS (6)
  1. INFLIXIMAB [Suspect]
     Route: 042
  2. INFLIXIMAB [Suspect]
     Route: 042
  3. INFLIXIMAB [Suspect]
     Indication: CROHN'S DISEASE
     Route: 042
  4. MERCAPTOPURINE [Suspect]
     Indication: CROHN'S DISEASE
  5. ANTISPASMODIC [Concomitant]
     Indication: CROHN'S DISEASE
  6. MESALAMINE [Concomitant]
     Indication: CROHN'S DISEASE

REACTIONS (2)
  - DRUG EXPOSURE DURING PREGNANCY [None]
  - INTRA-UTERINE DEATH [None]
